FAERS Safety Report 23432254 (Version 1)
Quarter: 2024Q1

REPORT INFORMATION
  Report Type: Other
  Country: IN (occurrence: IN)
  Receive Date: 20240123
  Receipt Date: 20240123
  Transmission Date: 20240409
  Serious: Yes (Life-Threatening, Hospitalization, Other)
  Sender: FDA-Public Use
  Company Number: IN-DEXPHARM-20240090

PATIENT
  Age: 69 Year
  Sex: Male

DRUGS (11)
  1. LEVETIRACETAM [Suspect]
     Active Substance: LEVETIRACETAM
     Indication: Product used for unknown indication
  2. TIGECYCLINE [Suspect]
     Active Substance: TIGECYCLINE
     Indication: C-reactive protein increased
     Dosage: LOADING DOSE
     Route: 042
     Dates: start: 20220427
  3. MEROPENEM [Concomitant]
     Active Substance: MEROPENEM
     Indication: C-reactive protein increased
     Route: 042
     Dates: start: 20220418, end: 20220426
  4. TEICOPLANIN [Concomitant]
     Active Substance: TEICOPLANIN
     Indication: C-reactive protein increased
     Route: 042
     Dates: start: 20220418, end: 20220423
  5. TIGECYCLINE [Suspect]
     Active Substance: TIGECYCLINE
     Indication: C-reactive protein increased
     Route: 042
     Dates: start: 20220427
  6. METOPROLOL [Concomitant]
     Active Substance: METOPROLOL
     Indication: Product used for unknown indication
  7. METFORMIN [Concomitant]
     Active Substance: METFORMIN HYDROCHLORIDE
     Indication: Product used for unknown indication
  8. IVABRADINE [Concomitant]
     Active Substance: IVABRADINE
     Indication: Product used for unknown indication
  9. PANTOPRAZOLE [Concomitant]
     Active Substance: PANTOPRAZOLE
     Indication: Product used for unknown indication
  10. Salbutamol with ipratropium [Concomitant]
     Indication: Product used for unknown indication
  11. LACTULOSE [Concomitant]
     Active Substance: LACTULOSE
     Indication: Product used for unknown indication

REACTIONS (2)
  - Rhabdomyolysis [Recovered/Resolved]
  - Blood creatine phosphokinase increased [Recovered/Resolved]
